FAERS Safety Report 4899791-5 (Version None)
Quarter: 2006Q1

REPORT INFORMATION
  Report Type: 
  Country: None (occurrence: None)
  Receive Date: 20060118
  Receipt Date: 20050511
  Transmission Date: 20060701
  Serious: No
  Sender: FDA-Public Use
  Company Number: 2005000916

PATIENT
  Age: 66 Year
  Sex: Female

DRUGS (9)
  1. TARCEVA [Suspect]
     Indication: NON-SMALL CELL LUNG CANCER
     Dosage: 150MG (QD),ORAL
     Route: 048
     Dates: start: 20050510
  2. DILTIAZEM HCL [Concomitant]
  3. METFORMIN [Concomitant]
  4. ASPIRIN [Concomitant]
  5. MULTI-VITAMIN [Concomitant]
  6. POTASSIUM [Concomitant]
  7. CALCIUM GLUCONATE [Concomitant]
  8. SPIRONOLACTONE [Concomitant]
  9. ANALGESICS [Concomitant]

REACTIONS (2)
  - COUGH [None]
  - PRODUCTIVE COUGH [None]
